FAERS Safety Report 7486760-4 (Version None)
Quarter: 2011Q2

REPORT INFORMATION
  Report Type: 
  Country: None (occurrence: None)
  Receive Date: 20110517
  Receipt Date: 20110506
  Transmission Date: 20111010
  Serious: Yes (Hospitalization)
  Sender: FDA-Public Use
  Company Number: US-ELI_LILLY_AND_COMPANY-US201105002567

PATIENT
  Sex: Female

DRUGS (2)
  1. HUMALOG [Suspect]
     Indication: DIABETES MELLITUS
     Dosage: UNK, OTHER
  2. HUMALOG [Suspect]
     Dosage: UNK, OTHER

REACTIONS (13)
  - DRY MOUTH [None]
  - FACE INJURY [None]
  - JOINT INJURY [None]
  - HOSPITALISATION [None]
  - DEHYDRATION [None]
  - DRUG INEFFECTIVE [None]
  - BLOOD GLUCOSE INCREASED [None]
  - DIZZINESS [None]
  - GAIT DISTURBANCE [None]
  - VISUAL IMPAIRMENT [None]
  - TEMPERATURE INTOLERANCE [None]
  - FALL [None]
  - THYROID DISORDER [None]
